FAERS Safety Report 6166962-X (Version None)
Quarter: 2009Q2

REPORT INFORMATION
  Report Type: 
  Country: None (occurrence: None)
  Receive Date: 20090424
  Receipt Date: 20090413
  Transmission Date: 20091009
  Serious: Yes (Life-Threatening, Hospitalization)
  Sender: FDA-Public Use
  Company Number: BR-PFIZER INC-2009180443

PATIENT

DRUGS (10)
  1. SUNITINIB MALATE [Suspect]
     Indication: METASTATIC RENAL CELL CARCINOMA
     Dosage: 50 MG, 1X/DAY, TDD 50 MG
     Route: 048
     Dates: start: 20061218, end: 20090218
  2. ALLOPURINOL [Concomitant]
     Dosage: UNK
     Route: 048
     Dates: start: 20080327
  3. OMEPRAZOLE [Concomitant]
     Dosage: UNK
     Route: 048
     Dates: start: 20070120
  4. ATENOLOL [Concomitant]
     Dosage: UNK
     Route: 048
     Dates: start: 20080429
  5. METFORMIN [Concomitant]
     Dosage: UNK
     Route: 048
     Dates: start: 19960101
  6. LEVOTHYROXINE [Concomitant]
     Dosage: UNK
     Route: 048
     Dates: start: 19980101
  7. EUTHYROX [Concomitant]
     Dosage: UNK
     Dates: start: 20080207
  8. GLUCOFORMIN [Concomitant]
     Dosage: UNK
     Dates: start: 20081221
  9. ALLOPURINOL [Concomitant]
     Dosage: UNK
     Dates: start: 20080327
  10. DIOVAN [Concomitant]
     Dosage: UNK
     Dates: start: 20080730

REACTIONS (1)
  - MYOCARDIAL INFARCTION [None]
